FAERS Safety Report 9980259 (Version 1)
Quarter: 2014Q1

REPORT INFORMATION
  Report Type: Report from Study
  Country: US (occurrence: US)
  Receive Date: 20140307
  Receipt Date: 20140307
  Transmission Date: 20141002
  Serious: No
  Sender: FDA-Public Use
  Company Number: US-ABBVIE-13P-163-1174167-00

PATIENT
  Sex: Male

DRUGS (8)
  1. HUMIRA [Suspect]
     Indication: CROHN^S DISEASE
     Dates: start: 201303
  2. HUMIRA [Suspect]
  3. LEVEMIR [Concomitant]
     Indication: DIABETES MELLITUS
  4. NESINA [Concomitant]
     Indication: PRODUCT USED FOR UNKNOWN INDICATION
  5. METFORMIN [Concomitant]
     Indication: PRODUCT USED FOR UNKNOWN INDICATION
  6. PREDNISONE [Concomitant]
     Indication: PRODUCT USED FOR UNKNOWN INDICATION
  7. PREDNISONE [Concomitant]
     Dosage: FOR 4 DAYS
  8. PREDNISONE [Concomitant]
     Dosage: FOR THE LAST 2 DAYS

REACTIONS (1)
  - Crohn^s disease [Not Recovered/Not Resolved]
